FAERS Safety Report 12601671 (Version 1)
Quarter: 2016Q3

REPORT INFORMATION
  Report Type: Spontaneous
  Country: US (occurrence: US)
  Receive Date: 20160728
  Receipt Date: 20160728
  Transmission Date: 20161109
  Serious: Yes (Other)
  Sender: FDA-Public Use
  Company Number: US-UNITED THERAPEUTICS-UNT-2016-003731

PATIENT
  Age: 62 Year
  Sex: Male
  Weight: 87.75 kg

DRUGS (2)
  1. ORENITRAM [Suspect]
     Active Substance: TREPROSTINIL
     Dosage: 0.75 MG, Q8H
  2. ORENITRAM [Suspect]
     Active Substance: TREPROSTINIL
     Indication: PULMONARY ARTERIAL HYPERTENSION
     Dosage: 0.75 MG, TID
     Route: 048
     Dates: start: 20151221

REACTIONS (5)
  - Bronchitis [Unknown]
  - Pneumonia [Unknown]
  - Abdominal discomfort [Unknown]
  - Contusion [Unknown]
  - Cough [Unknown]

NARRATIVE: CASE EVENT DATE: 20160225
